FAERS Safety Report 15301765 (Version 1)
Quarter: 2018Q3

REPORT INFORMATION
  Report Type: Report from Study
  Country: AR (occurrence: AR)
  Receive Date: 20180821
  Receipt Date: 20180821
  Transmission Date: 20181010
  Serious: Yes (Hospitalization)
  Sender: FDA-Public Use
  Company Number: PHHY2017AR136897

PATIENT
  Age: 41 Year
  Sex: Female

DRUGS (1)
  1. GILENYA [Suspect]
     Active Substance: FINGOLIMOD HYDROCHLORIDE
     Indication: MULTIPLE SCLEROSIS
     Dosage: 0.5 MG, QD
     Route: 065
     Dates: start: 2013, end: 201707

REACTIONS (7)
  - Nausea [Recovering/Resolving]
  - Facial pain [Not Recovered/Not Resolved]
  - Tachycardia [Recovering/Resolving]
  - Pain [Not Recovered/Not Resolved]
  - Blood pressure decreased [Recovering/Resolving]
  - Malaise [Recovering/Resolving]
  - Discomfort [Recovering/Resolving]

NARRATIVE: CASE EVENT DATE: 201707
